FAERS Safety Report 16421721 (Version 1)
Quarter: 2019Q2

REPORT INFORMATION
  Report Type: Spontaneous
  Country: US (occurrence: US)
  Receive Date: 20190506
  Receipt Date: 20190506
  Transmission Date: 20190711
  Serious: Yes (Hospitalization)
  Sender: FDA-Public Use
  Company Number: None

PATIENT
  Age: 53 Year
  Sex: Male

DRUGS (11)
  1. VITAMIN C [Concomitant]
     Active Substance: ASCORBIC ACID
  2. LIALDA [Concomitant]
     Active Substance: MESALAMINE
  3. LOVENOX [Concomitant]
     Active Substance: ENOXAPARIN SODIUM
  4. ELIQUIS [Concomitant]
     Active Substance: APIXABAN
  5. COTELLIC [Suspect]
     Active Substance: COBIMETINIB
     Indication: METASTASES TO LIVER
     Dosage: ON DAYS 1-21 WITH 7 DAYS OFF
     Route: 048
     Dates: start: 20170401
  6. MULTIVITAMIN [Concomitant]
     Active Substance: VITAMINS
  7. ZELBORAF [Suspect]
     Active Substance: VEMURAFENIB
     Route: 048
     Dates: start: 20170401
  8. COLESTIPAL [Concomitant]
  9. OMEPRAZOLE. [Concomitant]
     Active Substance: OMEPRAZOLE
  10. PREDNISONE. [Concomitant]
     Active Substance: PREDNISONE
  11. IRON SLOW [Concomitant]

REACTIONS (2)
  - Crohn^s disease [None]
  - Ulcer haemorrhage [None]
